FAERS Safety Report 7327236-4 (Version None)
Quarter: 2011Q1

REPORT INFORMATION
  Report Type: 
  Country: None (occurrence: None)
  Receive Date: 20110302
  Receipt Date: 20100916
  Transmission Date: 20110831
  Serious: Yes (Hospitalization)
  Sender: FDA-Public Use
  Company Number: US-ABBOTT-10P-163-0671789-00

PATIENT
  Age: 57 Year
  Sex: Female
  Weight: 95.34 kg

DRUGS (4)
  1. VALPROIC ACID [Suspect]
  2. ZOLOFT [Suspect]
     Dosage: ORAL SOLUTION
  3. SUNITINIB ALATE; SORAFENIB; PLACEBO [Suspect]
     Indication: RENAL CELL CARCINOMA
     Route: 048
     Dates: start: 20100624, end: 20100717
  4. MELOXICAM [Suspect]

REACTIONS (5)
  - MUSCULAR WEAKNESS [None]
  - FATIGUE [None]
  - DIPLOPIA [None]
  - DIZZINESS [None]
  - HALLUCINATION [None]
